FAERS Safety Report 6550052-8 (Version None)
Quarter: 2010Q1

REPORT INFORMATION
  Report Type: 
  Country: None (occurrence: None)
  Receive Date: 20100125
  Receipt Date: 20100115
  Transmission Date: 20100710
  Serious: Yes (Hospitalization)
  Sender: FDA-Public Use
  Company Number: DE-ABBOTT-10P-062-0619384-00

PATIENT
  Age: 46 Year
  Sex: Male
  Weight: 150 kg

DRUGS (13)
  1. HUMIRA [Suspect]
     Indication: RHEUMATOID ARTHRITIS
     Dates: start: 20040301, end: 20060401
  2. HUMIRA [Suspect]
     Dates: start: 20061201, end: 20080101
  3. METHOTREXATE [Suspect]
     Indication: RHEUMATOID ARTHRITIS
     Dates: start: 20060601, end: 20080101
  4. LEFLUNOMIDE [Concomitant]
     Indication: RHEUMATOID ARTHRITIS
     Dates: start: 20030101, end: 20060201
  5. AZATHIOPRINE [Concomitant]
     Indication: RHEUMATOID ARTHRITIS
     Dosage: 200 MG DAILY
     Dates: start: 20080901, end: 20090401
  6. FUROSEMID [Concomitant]
     Indication: HYPERTENSION
     Dosage: 20 MG DAILY
  7. RAMIPRIL [Concomitant]
     Indication: HYPERTENSION
     Dosage: 5 MG DAILY
  8. METOPROLOL MITE [Concomitant]
     Indication: HYPERTENSION
     Dosage: 2 - 47.5 MG TABS DAILY
  9. DOXAZOSIN MESYLATE [Concomitant]
     Indication: HYPERTENSION
     Dosage: 4 MG DAILY
  10. PANTOPRAZOLE [Concomitant]
     Indication: PROPHYLAXIS AGAINST GASTROINTESTINAL ULCER
     Dosage: 20 MG DAILY
  11. CANDESARTAN CILEXETIL [Concomitant]
     Indication: HYPERTENSION
     Dosage: 16 MG DAILY
  12. HYDROCHLOROTHIAZIDE [Concomitant]
     Indication: HYPERTENSION
     Dosage: 12.5 MG DAILY
  13. QUENSYL [Concomitant]
     Indication: RHEUMATOID ARTHRITIS

REACTIONS (5)
  - GENERAL PHYSICAL HEALTH DETERIORATION [None]
  - LEUKOCYTOCLASTIC VASCULITIS [None]
  - OEDEMA PERIPHERAL [None]
  - PAIN [None]
  - RENAL DISORDER [None]
